FAERS Safety Report 21586220 (Version 1)
Quarter: 2022Q4

REPORT INFORMATION
  Report Type: Spontaneous
  Country: US (occurrence: US)
  Receive Date: 20221112
  Receipt Date: 20221112
  Transmission Date: 20230112
  Serious: No
  Sender: FDA-Public Use
  Company Number: US-Ipsen Biopharmaceuticals, Inc.-2022-29610

PATIENT
  Age: 55 Year
  Sex: Female

DRUGS (8)
  1. DYSPORT [Suspect]
     Active Substance: ABOBOTULINUMTOXINA
     Indication: Skin wrinkling
     Dosage: 110 UNITS
     Route: 065
     Dates: start: 20221021, end: 20221021
  2. DYSPORT [Suspect]
     Active Substance: ABOBOTULINUMTOXINA
     Indication: Skin wrinkling
  3. DYSPORT [Suspect]
     Active Substance: ABOBOTULINUMTOXINA
     Indication: Skin wrinkling
  4. DYSPORT [Suspect]
     Active Substance: ABOBOTULINUMTOXINA
     Indication: Off label use
  5. PRISTIQ EXTENDED-RELEASE [Concomitant]
     Active Substance: DESVENLAFAXINE SUCCINATE
  6. ATIVAN [Concomitant]
     Active Substance: LORAZEPAM
  7. LAMICTAL [Concomitant]
     Active Substance: LAMOTRIGINE
  8. CRESTOR [Concomitant]
     Active Substance: ROSUVASTATIN CALCIUM

REACTIONS (4)
  - Headache [Recovered/Resolved]
  - Off label use [Unknown]
  - Drug ineffective [Unknown]
  - Exposure during pregnancy [Unknown]

NARRATIVE: CASE EVENT DATE: 20221001
